FAERS Safety Report 9568080 (Version 1)
Quarter: 2013Q3

REPORT INFORMATION
  Report Type: Spontaneous
  Country: US (occurrence: US)
  Receive Date: 20130930
  Receipt Date: 20130930
  Transmission Date: 20140515
  Serious: No
  Sender: FDA-Public Use
  Company Number: US-AMGEN-USASP2013057741

PATIENT
  Age: 56 Year
  Sex: Female
  Weight: 62.13 kg

DRUGS (1)
  1. ENBREL [Suspect]
     Indication: PSORIATIC ARTHROPATHY
     Dosage: 50 MG, QWK, ON MONDAY
     Route: 058
     Dates: start: 20070814

REACTIONS (1)
  - Muscle injury [Recovered/Resolved]
